FAERS Safety Report 24315394 (Version 1)
Quarter: 2024Q3

REPORT INFORMATION
  Report Type: Spontaneous
  Country: US (occurrence: US)
  Receive Date: 20240913
  Receipt Date: 20240913
  Transmission Date: 20241016
  Serious: Yes (Other)
  Sender: STRIDES
  Company Number: US-STRIDES ARCOLAB LIMITED-2024SP008444

PATIENT
  Sex: Female

DRUGS (20)
  1. MYCOPHENOLATE MOFETIL [Suspect]
     Active Substance: MYCOPHENOLATE MOFETIL
     Indication: Lichen planus
     Dosage: UNK
     Route: 065
  2. MYCOPHENOLATE MOFETIL [Suspect]
     Active Substance: MYCOPHENOLATE MOFETIL
     Indication: Vulvovaginal disorder
  3. METHOTREXATE [Suspect]
     Active Substance: METHOTREXATE
     Indication: Lichen planus
     Dosage: UNK
     Route: 065
  4. METHOTREXATE [Suspect]
     Active Substance: METHOTREXATE
     Indication: Vulvovaginal disorder
  5. HYDROXYCHLOROQUINE [Suspect]
     Active Substance: HYDROXYCHLOROQUINE
     Indication: Lichen planus
     Dosage: UNK
     Route: 065
  6. HYDROXYCHLOROQUINE [Suspect]
     Active Substance: HYDROXYCHLOROQUINE
     Indication: Vulvovaginal disorder
  7. TACROLIMUS [Suspect]
     Active Substance: TACROLIMUS
     Indication: Lichen planus
     Dosage: UNK; SYSTEMIC
     Route: 061
  8. TACROLIMUS [Suspect]
     Active Substance: TACROLIMUS
     Indication: Vulvovaginal disorder
     Dosage: UNK
     Route: 061
  9. ADALIMUMAB [Suspect]
     Active Substance: ADALIMUMAB
     Indication: Lichen planus
     Dosage: UNK
     Route: 065
  10. ADALIMUMAB [Suspect]
     Active Substance: ADALIMUMAB
     Indication: Vulvovaginal disorder
  11. USTEKINUMAB [Suspect]
     Active Substance: USTEKINUMAB
     Indication: Lichen planus
     Dosage: UNK
     Route: 065
  12. USTEKINUMAB [Suspect]
     Active Substance: USTEKINUMAB
     Indication: Vulvovaginal disorder
  13. NALTREXONE [Suspect]
     Active Substance: NALTREXONE
     Indication: Lichen planus
     Dosage: UNK
     Route: 065
  14. NALTREXONE [Suspect]
     Active Substance: NALTREXONE
     Indication: Vulvovaginal disorder
  15. ETANERCEPT [Suspect]
     Active Substance: ETANERCEPT
     Indication: Lichen planus
     Dosage: UNK
     Route: 065
  16. ETANERCEPT [Suspect]
     Active Substance: ETANERCEPT
     Indication: Vulvovaginal disorder
  17. DAPSONE [Suspect]
     Active Substance: DAPSONE
     Indication: Lichen planus
     Dosage: UNK
     Route: 065
  18. DAPSONE [Suspect]
     Active Substance: DAPSONE
     Indication: Vulvovaginal disorder
  19. IXEKIZUMAB [Suspect]
     Active Substance: IXEKIZUMAB
     Indication: Lichen planus
     Dosage: UNK
     Route: 065
  20. IXEKIZUMAB [Suspect]
     Active Substance: IXEKIZUMAB
     Indication: Vulvovaginal disorder

REACTIONS (1)
  - Drug ineffective for unapproved indication [Unknown]
